FAERS Safety Report 21198236 (Version 2)
Quarter: 2022Q3

REPORT INFORMATION
  Report Type: Report from Study
  Country: CA (occurrence: CA)
  Receive Date: 20220811
  Receipt Date: 20220812
  Transmission Date: 20221027
  Serious: Yes (Other)
  Sender: FDA-Public Use
  Company Number: CA-BRISTOL-MYERS SQUIBB COMPANY-2022-086613

PATIENT
  Age: 71 Year
  Sex: Female
  Weight: 99.79 kg

DRUGS (3)
  1. ORENCIA [Suspect]
     Active Substance: ABATACEPT
     Indication: Rheumatoid arthritis
     Route: 042
     Dates: start: 20140408
  2. ORENCIA [Suspect]
     Active Substance: ABATACEPT
  3. METHOTREXATE SODIUM [Concomitant]
     Active Substance: METHOTREXATE SODIUM
     Indication: Product used for unknown indication
     Route: 065
     Dates: start: 20130901

REACTIONS (3)
  - Arthropathy [Unknown]
  - Cataract [Unknown]
  - Prescribed overdose [Unknown]
